FAERS Safety Report 7526595-7 (Version None)
Quarter: 2011Q2

REPORT INFORMATION
  Report Type: 
  Country: None (occurrence: None)
  Receive Date: 20110606
  Receipt Date: 20110531
  Transmission Date: 20111010
  Serious: Yes (Death)
  Sender: FDA-Public Use
  Company Number: TW-ASTRAZENECA-2011SE33220

PATIENT
  Sex: Male

DRUGS (1)
  1. PLENDIL [Suspect]
     Route: 048

REACTIONS (1)
  - DYSPNOEA [None]
